FAERS Safety Report 4932715-0 (Version None)
Quarter: 2006Q1

REPORT INFORMATION
  Report Type: 
  Country: None (occurrence: None)
  Receive Date: 20060306
  Receipt Date: 20060215
  Transmission Date: 20060701
  Serious: Yes (Other)
  Sender: FDA-Public Use
  Company Number: PHBS2006JP02626

PATIENT
  Age: 74 Year

DRUGS (4)
  1. CARBAMAZEPINE [Suspect]
     Indication: TEMPORAL LOBE EPILEPSY
     Dosage: 200 MG/DAY
     Route: 065
  2. CARBAMAZEPINE [Suspect]
     Dosage: 50 MG/DAY
     Route: 065
  3. CARBAMAZEPINE [Suspect]
     Dosage: 200 MG/DAY
     Route: 065
  4. VALPROATE SODIUM [Concomitant]
     Indication: TEMPORAL LOBE EPILEPSY
     Dosage: 1000 MG/DAY
     Route: 065

REACTIONS (1)
  - DELIRIUM [None]
